FAERS Safety Report 20700019 (Version 1)
Quarter: 2022Q2

REPORT INFORMATION
  Report Type: Report from Study
  Country: MX (occurrence: MX)
  Receive Date: 20220412
  Receipt Date: 20220412
  Transmission Date: 20220721
  Serious: Yes (Other)
  Sender: FDA-Public Use
  Company Number: MX-NOVARTISPH-NVSC2022MX082607

PATIENT
  Age: 42 Year
  Sex: Male
  Weight: 90 kg

DRUGS (4)
  1. EXFORGE [Suspect]
     Active Substance: AMLODIPINE BESYLATE\VALSARTAN
     Indication: Blood pressure increased
     Dosage: 1.5 DOSAGE FORM
     Route: 048
     Dates: start: 20160310
  2. EXFORGE [Suspect]
     Active Substance: AMLODIPINE BESYLATE\VALSARTAN
     Dosage: 1 DOSAGE FORM (1 OF 320/5 MG)
     Route: 048
  3. TIZANIDINE [Suspect]
     Active Substance: TIZANIDINE
     Indication: Nervous system disorder
     Dosage: 1 DOSAGE FORM, QD (5 MG)
     Route: 048
     Dates: start: 20160310
  4. NEBIVOLOL HYDROCHLORIDE [Concomitant]
     Active Substance: NEBIVOLOL HYDROCHLORIDE
     Indication: Product used for unknown indication
     Dosage: 5 MG
     Route: 065
     Dates: start: 20160310

REACTIONS (10)
  - Seizure [Recovering/Resolving]
  - Tremor [Not Recovered/Not Resolved]
  - Feeling of despair [Not Recovered/Not Resolved]
  - Nervous system disorder [Recovered/Resolved with Sequelae]
  - Weight decreased [Recovered/Resolved]
  - Myalgia [Recovered/Resolved with Sequelae]
  - Nervousness [Not Recovered/Not Resolved]
  - Fear [Not Recovered/Not Resolved]
  - Sleep deficit [Not Recovered/Not Resolved]
  - Off label use [Not Recovered/Not Resolved]

NARRATIVE: CASE EVENT DATE: 20160310
